FAERS Safety Report 9196163 (Version 1)
Quarter: 2013Q1

REPORT INFORMATION
  Report Type: Spontaneous
  Country: US (occurrence: None)
  Receive Date: 20120703
  Receipt Date: 20120703
  Transmission Date: 20140127
  Serious: No
  Sender: FDA-Public Use
  Company Number: PHEH2011US013146

PATIENT
  Age: 42 Year
  Sex: Female

DRUGS (5)
  1. GILENYA (FTY)CAPSULE [Suspect]
     Indication: MULTIPLE SCLEROSIS
     Route: 048
     Dates: start: 20110428
  2. ADVAIR (FLUTICASONE PROPIONATE, SALMETEROL XINAFOATE) [Concomitant]
  3. CLARITIN (LORATIDINE) [Concomitant]
  4. METFORMIN (METFORMIN) [Concomitant]
  5. CONTRACEPTIVES NOS (NO INGREDIENTS/SUBSTANCES) [Concomitant]

REACTIONS (2)
  - Pain in extremity [None]
  - Somnolence [None]
